FAERS Safety Report 8593778-7 (Version None)
Quarter: 2012Q3

REPORT INFORMATION
  Report Type: 
  Country: None (occurrence: None)
  Receive Date: 20120814
  Receipt Date: 20120801
  Transmission Date: 20120928
  Serious: No
  Sender: FDA-Public Use
  Company Number: US-ASTRAZENECA-2012SE54859

PATIENT
  Sex: Male
  Weight: 74.8 kg

DRUGS (6)
  1. NEXIUM [Suspect]
     Indication: HELICOBACTER INFECTION
     Route: 048
     Dates: start: 20120718
  2. CALCIUM 500MG W/VITAMIN D [Concomitant]
  3. OMEPRAZOLE [Suspect]
     Indication: IRRITABLE BOWEL SYNDROME
     Dates: start: 19980101
  4. OMEPRAZOLE [Suspect]
     Dates: end: 20120719
  5. TRAZODONE HCL [Concomitant]
     Indication: SLEEP DISORDER
  6. DICLONAMINE [Concomitant]

REACTIONS (6)
  - BALANCE DISORDER [None]
  - HEADACHE [None]
  - DIZZINESS [None]
  - HIATUS HERNIA [None]
  - OFF LABEL USE [None]
  - FULL BLOOD COUNT DECREASED [None]
